FAERS Safety Report 5766948-0 (Version None)
Quarter: 2008Q2

REPORT INFORMATION
  Report Type: 
  Country: None (occurrence: None)
  Receive Date: 20080609
  Receipt Date: 20080603
  Transmission Date: 20081010
  Serious: Yes (Death, Hospitalization, Other)
  Sender: FDA-Public Use
  Company Number: 2008SP010830

PATIENT
  Age: 48 Year
  Sex: Female

DRUGS (3)
  1. VIRAFERONPEG [Suspect]
     Indication: HEPATITIS C
     Dosage: 1.5 MCG/KG; QW;
     Dates: start: 20050101, end: 20050501
  2. RIBAVIRIN [Suspect]
     Indication: HEPATITIS C
     Dosage: 10.3 MG/KG; QD;
     Dates: start: 20050101, end: 20050501
  3. PAROXETINE (CON.) [Concomitant]

REACTIONS (12)
  - ARTHRALGIA [None]
  - ASTHENIA [None]
  - AUTOIMMUNE HEPATITIS [None]
  - CELL DEATH [None]
  - CHOLANGITIS [None]
  - DIALYSIS [None]
  - HEPATIC ENCEPHALOPATHY [None]
  - MULTI-ORGAN FAILURE [None]
  - MYALGIA [None]
  - PROTHROMBIN TIME SHORTENED [None]
  - PURPURA [None]
  - SEPSIS [None]
